FAERS Safety Report 15469113 (Version 2)
Quarter: 2018Q4

REPORT INFORMATION
  Report Type: Report from Study
  Country: MK (occurrence: MK)
  Receive Date: 20181005
  Receipt Date: 20181010
  Transmission Date: 20190205
  Serious: Yes (Other)
  Sender: FDA-Public Use
  Company Number: MK-UCBSA-2018044901

PATIENT
  Age: 28 Year
  Sex: Female

DRUGS (5)
  1. CARBAMAZEPINE. [Concomitant]
     Active Substance: CARBAMAZEPINE
     Indication: SEIZURE
     Dosage: UNKNOWN DOSE
  2. TOPIRAMATE. [Concomitant]
     Active Substance: TOPIRAMATE
     Indication: SEIZURE
     Dosage: UNKNOWN DOSE
  3. VALPROIC ACID. [Concomitant]
     Active Substance: VALPROIC ACID
     Indication: SEIZURE
     Dosage: UNKNOWN DOSE
  4. PHENOBARBITAL. [Concomitant]
     Active Substance: PHENOBARBITAL
     Indication: SEIZURE
     Dosage: UNKNOWN DOSE
  5. LEVETIRACETAM. [Suspect]
     Active Substance: LEVETIRACETAM
     Indication: SEIZURE
     Dosage: 1000 MG/ DAY MAXIMUM DOSE

REACTIONS (1)
  - Seizure [Recovered/Resolved]
